FAERS Safety Report 4943302-2 (Version None)
Quarter: 2006Q1

REPORT INFORMATION
  Report Type: 
  Country: None (occurrence: None)
  Receive Date: 20060314
  Receipt Date: 20060303
  Transmission Date: 20060701
  Serious: Yes (Hospitalization)
  Sender: FDA-Public Use
  Company Number: GB-ROCHE-439468

PATIENT
  Age: 53 Year
  Sex: Female
  Weight: 96.1 kg

DRUGS (5)
  1. XENICAL [Suspect]
     Indication: OBESITY
     Route: 048
     Dates: start: 20060222, end: 20060303
  2. METFORMIN [Suspect]
     Indication: DRUG USE FOR UNKNOWN INDICATION
     Route: 065
     Dates: start: 20060302
  3. THYROXINE [Concomitant]
  4. FRUSEMIDE [Concomitant]
  5. ASPIRIN [Concomitant]

REACTIONS (5)
  - ASTHENIA [None]
  - BLOOD GLUCOSE FLUCTUATION [None]
  - CONFUSIONAL STATE [None]
  - DYSARTHRIA [None]
  - FATIGUE [None]
